FAERS Safety Report 7314107-2 (Version None)
Quarter: 2011Q1

REPORT INFORMATION
  Report Type: 
  Country: None (occurrence: None)
  Receive Date: 20110218
  Receipt Date: 20110218
  Transmission Date: 20110831
  Serious: Yes (Hospitalization)
  Sender: FDA-Public Use
  Company Number: None

PATIENT
  Age: 48 Year
  Sex: Male
  Weight: 63 kg

DRUGS (1)
  1. ACETAMINOPHEN/OXYCODONE [Suspect]
     Indication: PAIN
     Dosage: 1 TAB PRN PO
     Route: 048
     Dates: start: 20100901, end: 20100903

REACTIONS (2)
  - PRURITUS GENERALISED [None]
  - URTICARIA [None]
